FAERS Safety Report 12886961 (Version 1)
Quarter: 2016Q4

REPORT INFORMATION
  Report Type: Spontaneous
  Country: ES (occurrence: ES)
  Receive Date: 20161026
  Receipt Date: 20161026
  Transmission Date: 20170207
  Serious: Yes (Hospitalization)
  Sender: FDA-Public Use
  Company Number: ES-MYLANLABS-2016M1045630

PATIENT

DRUGS (3)
  1. MERCAPTAMINE [Suspect]
     Active Substance: CYSTEAMINE
     Dosage: 1200 MG, QD
     Route: 050
     Dates: end: 2016
  2. MERCAPTAMINE [Suspect]
     Active Substance: CYSTEAMINE
     Dosage: 400 MG, QD
     Route: 050
     Dates: start: 2016, end: 201610
  3. MERCAPTAMINE [Suspect]
     Active Substance: CYSTEAMINE
     Indication: PRODUCT USED FOR UNKNOWN INDICATION
     Dosage: UNK
     Route: 048

REACTIONS (8)
  - Dehydration [Unknown]
  - Vomiting [Unknown]
  - Gastrointestinal motility disorder [Unknown]
  - Drug ineffective [Unknown]
  - Gastritis [Unknown]
  - Malnutrition [Unknown]
  - Incorrect route of drug administration [Unknown]
  - Hair colour changes [Unknown]

NARRATIVE: CASE EVENT DATE: 2014
